FAERS Safety Report 10979872 (Version 1)
Quarter: 2015Q2

REPORT INFORMATION
  Report Type: Spontaneous
  Country: US (occurrence: US)
  Receive Date: 20150402
  Receipt Date: 20150402
  Transmission Date: 20150821
  Serious: No
  Sender: FDA-Public Use
  Company Number: US-SA-2014SA140821

PATIENT
  Age: 11 Year
  Sex: Male

DRUGS (1)
  1. ALLEGRA [Suspect]
     Active Substance: FEXOFENADINE HYDROCHLORIDE
     Indication: HYPERSENSITIVITY
     Dosage: THERAPY START DATE: 5 YEARS AGO?DOSE: 30 MG?FREQUENCY: 2 TABLETS 2X A DAY
     Route: 048

REACTIONS (1)
  - Dysgeusia [Unknown]
